FAERS Safety Report 26064164 (Version 1)
Quarter: 2025Q4

REPORT INFORMATION
  Report Type: Spontaneous
  Country: EU (occurrence: EU)
  Receive Date: 20251119
  Receipt Date: 20251119
  Transmission Date: 20260117
  Serious: Yes (Other)
  Sender: RANBAXY
  Company Number: EU-SUN PHARMACEUTICAL INDUSTRIES LTD-2025R1-537250

PATIENT
  Age: 67 Year
  Sex: Male

DRUGS (2)
  1. EZETIMIBE [Interacting]
     Active Substance: EZETIMIBE
     Indication: Coronary artery disease
     Dosage: UNK
     Route: 065
  2. INCLISIRAN [Interacting]
     Active Substance: INCLISIRAN
     Indication: Coronary artery disease
     Dosage: UNK (300 MG ON DAYS 0 AND 90 AND THEN EVERY 6 MONTHS)
     Route: 065

REACTIONS (2)
  - Disease progression [Unknown]
  - Drug interaction [Unknown]
